FAERS Safety Report 8396871-7 (Version None)
Quarter: 2012Q2

REPORT INFORMATION
  Report Type: 
  Country: None (occurrence: None)
  Receive Date: 20120530
  Receipt Date: 20120521
  Transmission Date: 20120825
  Serious: Yes (Hospitalization)
  Sender: FDA-Public Use
  Company Number: HR-JNJFOC-20120517482

PATIENT
  Sex: Female

DRUGS (5)
  1. EUTHYROX [Concomitant]
     Indication: HYPOTHYROIDISM
     Route: 048
  2. SIMPONI [Suspect]
     Indication: RHEUMATOID ARTHRITIS
     Route: 058
     Dates: start: 20120314
  3. OSSEOR [Concomitant]
     Indication: OSTEOPOROSIS
  4. ENAP [Concomitant]
     Indication: HYPERTENSION
     Route: 048
  5. MEDROL [Concomitant]
     Indication: RHEUMATOID ARTHRITIS
     Route: 048

REACTIONS (8)
  - DRY MOUTH [None]
  - NAUSEA [None]
  - DIZZINESS [None]
  - DECREASED APPETITE [None]
  - VOMITING [None]
  - GAIT DISTURBANCE [None]
  - TREMOR [None]
  - HEADACHE [None]
